FAERS Safety Report 21872099 (Version 1)
Quarter: 2023Q1

REPORT INFORMATION
  Report Type: Spontaneous
  Country: US (occurrence: None)
  Receive Date: 20230114
  Receipt Date: 20230114
  Transmission Date: 20230418
  Serious: Yes (Disabling, Other)
  Sender: FDA-Public Use
  Company Number: None

PATIENT
  Age: 64 Year
  Sex: Female
  Weight: 63 kg

DRUGS (35)
  1. ESCITALOPRAM [Suspect]
     Active Substance: ESCITALOPRAM OXALATE
     Indication: Anxiety
     Route: 048
     Dates: start: 20220806, end: 20220930
  2. IMODIUM [Concomitant]
     Active Substance: LOPERAMIDE HYDROCHLORIDE
  3. CURCUMIN [Concomitant]
     Active Substance: CURCUMIN
  4. VITAMIN C [Concomitant]
     Active Substance: ASCORBIC ACID
  5. Lauricidin [Concomitant]
  6. QUERCETIN [Concomitant]
     Active Substance: QUERCETIN
  7. HERBALS\SAW PALMETTO [Concomitant]
     Active Substance: HERBALS\SAW PALMETTO
  8. VITAMIN D NOS [Concomitant]
     Active Substance: VITAMIN D NOS
  9. AVIPAXIN [Concomitant]
  10. VITAMIN B12 [Concomitant]
     Active Substance: CYANOCOBALAMIN
  11. LEVOMEFOLATE CALCIUM [Concomitant]
     Active Substance: LEVOMEFOLATE CALCIUM
  12. UBIQUINOL [Concomitant]
     Active Substance: UBIQUINOL
  13. DIETARY SUPPLEMENT [Concomitant]
     Active Substance: DIETARY SUPPLEMENT
  14. PROGESTERONE [Concomitant]
     Active Substance: PROGESTERONE
  15. ESTROGENS [Concomitant]
     Active Substance: ESTROGENS
  16. TESTOSTERONE [Concomitant]
     Active Substance: TESTOSTERONE
  17. Madnesium L-threonate [Concomitant]
  18. CALCIUM CITRATE [Concomitant]
     Active Substance: CALCIUM CITRATE
  19. TAURINE [Concomitant]
     Active Substance: TAURINE
  20. MODUCARE [Concomitant]
  21. MELATONIN [Concomitant]
     Active Substance: MELATONIN
  22. PFP B-6 [Concomitant]
  23. COPPER [Concomitant]
     Active Substance: COPPER
  24. B-1 [Concomitant]
  25. GINGER [Concomitant]
     Active Substance: GINGER
  26. Pharma GABA [Concomitant]
  27. ZINC [Concomitant]
     Active Substance: ZINC
  28. DIETARY SUPPLEMENT [Concomitant]
     Active Substance: DIETARY SUPPLEMENT
  29. black cumin seed oil [Concomitant]
  30. HERBALS\MELISSA OFFICINALIS [Concomitant]
     Active Substance: HERBALS\MELISSA OFFICINALIS
  31. THC/CBN gummies [Concomitant]
  32. ELM [Concomitant]
     Active Substance: ELM
  33. marshmallow root [Concomitant]
  34. immunoglobulin [Concomitant]
  35. LYSINE [Concomitant]
     Active Substance: LYSINE

REACTIONS (2)
  - Gastrointestinal disorder [None]
  - Colitis microscopic [None]

NARRATIVE: CASE EVENT DATE: 20220828
